FAERS Safety Report 14498692 (Version 1)
Quarter: 2018Q1

REPORT INFORMATION
  Report Type: Spontaneous
  Country: US (occurrence: US)
  Receive Date: 20180207
  Receipt Date: 20180207
  Transmission Date: 20180509
  Serious: Yes (Hospitalization, Other)
  Sender: FDA-Public Use
  Company Number: US-BAUSCH-BL-2018-002782

PATIENT
  Sex: Female

DRUGS (1)
  1. XIFAXAN [Suspect]
     Active Substance: RIFAXIMIN
     Indication: HEPATIC ENCEPHALOPATHY
     Route: 048
     Dates: start: 201703

REACTIONS (10)
  - Malaise [Recovering/Resolving]
  - Hospitalisation [Recovering/Resolving]
  - Unresponsive to stimuli [Recovering/Resolving]
  - Feeling abnormal [Recovering/Resolving]
  - White blood cell count increased [Recovering/Resolving]
  - Disorientation [Recovering/Resolving]
  - Somnolence [Recovering/Resolving]
  - Blood potassium increased [Recovering/Resolving]
  - Gastrointestinal infection [Recovered/Resolved]
  - Blood sodium decreased [Recovering/Resolving]

NARRATIVE: CASE EVENT DATE: 2017
